FAERS Safety Report 10880119 (Version 3)
Quarter: 2015Q2

REPORT INFORMATION
  Report Type: Spontaneous
  Country: US (occurrence: US)
  Receive Date: 20150302
  Receipt Date: 20150610
  Transmission Date: 20150821
  Serious: No
  Sender: FDA-Public Use
  Company Number: US-PFIZER INC-2015070591

PATIENT
  Age: 52 Year
  Sex: Female
  Weight: 84 kg

DRUGS (3)
  1. LYRICA [Suspect]
     Active Substance: PREGABALIN
     Dosage: UNK
     Route: 048
     Dates: start: 201410
  2. LYRICA [Suspect]
     Active Substance: PREGABALIN
     Dosage: 210 MG, 2X/DAY
  3. LYRICA [Suspect]
     Active Substance: PREGABALIN
     Indication: FIBROMYALGIA
     Dosage: 150 MG, 1X/DAY
     Route: 048
     Dates: start: 2010

REACTIONS (4)
  - Peripheral swelling [Not Recovered/Not Resolved]
  - Gastrointestinal disorder [Recovered/Resolved]
  - Pain [Not Recovered/Not Resolved]
  - Headache [Recovered/Resolved]

NARRATIVE: CASE EVENT DATE: 2010
